FAERS Safety Report 9912517 (Version 2)
Quarter: 2014Q2

REPORT INFORMATION
  Report Type: Spontaneous
  Country: US (occurrence: US)
  Receive Date: 20140220
  Receipt Date: 20140429
  Transmission Date: 20141212
  Serious: No
  Sender: FDA-Public Use
  Company Number: US-009507513-1402USA002940

PATIENT
  Age: 26 Year
  Sex: Female
  Weight: 48.98 kg

DRUGS (3)
  1. NUVARING [Suspect]
     Indication: CONTRACEPTION
     Dosage: STRENGTH .015/0.12, FIRST RING OF THE 3 NUVARINGS POUCHES
     Route: 067
     Dates: start: 20140116
  2. NUVARING [Suspect]
     Dosage: STRENGTH .015/0.12
     Route: 067
     Dates: start: 201210
  3. VITAMINS (UNSPECIFIED) [Concomitant]
     Dosage: UNK

REACTIONS (6)
  - Withdrawal bleed [Recovered/Resolved]
  - Product odour abnormal [Unknown]
  - Product odour abnormal [Unknown]
  - Incorrect product storage [Unknown]
  - Vaginal odour [Recovered/Resolved]
  - Smear vaginal abnormal [Unknown]
